FAERS Safety Report 4343246-3 (Version None)
Quarter: 2004Q2

REPORT INFORMATION
  Report Type: 
  Country: None (occurrence: None)
  Receive Date: 20040421
  Receipt Date: 20040414
  Transmission Date: 20050107
  Serious: Yes (Death, Life-Threatening, Hospitalization, Other)
  Sender: FDA-Public Use
  Company Number: GB-MERCK-0404GBR00111

PATIENT
  Age: 83 Year
  Sex: Male
  Weight: 74 kg

DRUGS (6)
  1. ALBUTEROL [Concomitant]
     Route: 055
     Dates: start: 19990901
  2. AMLODIPINE BESYLATE [Concomitant]
     Route: 065
     Dates: start: 19990104
  3. BISOPROLOL FUMARATE [Concomitant]
     Route: 065
     Dates: start: 19990205
  4. FOSINOPRIL SODIUM [Concomitant]
     Route: 065
     Dates: start: 20010728
  5. IBUPROFEN [Concomitant]
     Route: 065
     Dates: start: 20001206
  6. VIOXX [Suspect]
     Indication: GOUT
     Route: 048
     Dates: start: 20021021, end: 20030801

REACTIONS (1)
  - DUODENAL ULCER PERFORATION [None]
